FAERS Safety Report 6066042-8 (Version None)
Quarter: 2009Q1

REPORT INFORMATION
  Report Type: 
  Country: None (occurrence: None)
  Receive Date: 20090205
  Receipt Date: 20090129
  Transmission Date: 20090719
  Serious: Yes (Hospitalization)
  Sender: FDA-Public Use
  Company Number: US-BAYER-200910312BCC

PATIENT
  Age: 47 Year
  Sex: Male
  Weight: 93 kg

DRUGS (1)
  1. ALEVE [Suspect]
     Indication: PAIN

REACTIONS (4)
  - GINGIVAL BLEEDING [None]
  - PETECHIAE [None]
  - PLATELET COUNT DECREASED [None]
  - THROMBOCYTOPENIA [None]
